FAERS Safety Report 24804445 (Version 1)
Quarter: 2025Q1

REPORT INFORMATION
  Report Type: Spontaneous
  Country: US (occurrence: None)
  Receive Date: 20250103
  Receipt Date: 20250103
  Transmission Date: 20250409
  Serious: Yes (Hospitalization)
  Sender: FDA-CTU
  Company Number: None

PATIENT
  Age: 77 Year
  Sex: Male
  Weight: 88.5 kg

DRUGS (3)
  1. DARATUMUMAB\HYALURONIDASE-FIHJ [Suspect]
     Active Substance: DARATUMUMAB\HYALURONIDASE-FIHJ
     Dates: end: 20240820
  2. DEXAMETHASONE [Suspect]
     Active Substance: DEXAMETHASONE
     Dates: end: 20240820
  3. LENALIDOMIDE [Suspect]
     Active Substance: LENALIDOMIDE
     Dates: end: 20240826

REACTIONS (13)
  - Disturbance in attention [None]
  - Disorientation [None]
  - Hypotension [None]
  - Anaemia [None]
  - Electrocardiogram ST segment abnormal [None]
  - Troponin increased [None]
  - Haemoglobin decreased [None]
  - Aspartate aminotransferase increased [None]
  - Alanine aminotransferase increased [None]
  - Mental status changes [None]
  - Duodenal ulcer [None]
  - Gastrointestinal haemorrhage [None]
  - Confusional state [None]

NARRATIVE: CASE EVENT DATE: 20240827
